FAERS Safety Report 18305269 (Version 2)
Quarter: 2021Q1

REPORT INFORMATION
  Report Type: Report from Study
  Country: FR (occurrence: FR)
  Receive Date: 20200924
  Receipt Date: 20210208
  Transmission Date: 20210419
  Serious: Yes (Hospitalization)
  Sender: FDA-Public Use
  Company Number: FR-GLAXOSMITHKLINE-FR2020GSK188455

PATIENT
  Age: 76 Year
  Sex: Female
  Weight: 56 kg

DRUGS (10)
  1. NIRAPARIB [Suspect]
     Active Substance: NIRAPARIB
     Indication: OVARIAN CANCER
     Dosage: 200 MG
     Dates: start: 20200915
  2. DOSTARLIMAB [Suspect]
     Active Substance: DOSTARLIMAB
     Indication: OVARIAN CANCER
     Dosage: 500 MG
     Dates: start: 20200402, end: 20200402
  3. PACLITAXEL. [Suspect]
     Active Substance: PACLITAXEL
     Indication: OVARIAN CANCER
     Dosage: 272 MG
     Route: 042
     Dates: start: 20200312, end: 20200312
  4. PACLITAXEL. [Suspect]
     Active Substance: PACLITAXEL
     Dosage: 201 MG
     Route: 042
     Dates: start: 20200625, end: 20200625
  5. CISPLATIN. [Concomitant]
     Active Substance: CISPLATIN
     Dosage: UNK
  6. DOSTARLIMAB [Suspect]
     Active Substance: DOSTARLIMAB
     Dosage: 1000 MG
     Dates: start: 20200826, end: 20200826
  7. BEVACIZUMAB. [Suspect]
     Active Substance: BEVACIZUMAB
     Indication: OVARIAN CANCER
     Dosage: UNK
     Route: 042
  8. DOCETAXEL. [Concomitant]
     Active Substance: DOCETAXEL
     Dosage: UNK
  9. CARBOPLATIN. [Suspect]
     Active Substance: CARBOPLATIN
     Dosage: 5AUC
     Route: 042
     Dates: start: 20200625, end: 20200625
  10. CARBOPLATIN. [Suspect]
     Active Substance: CARBOPLATIN
     Indication: OVARIAN CANCER
     Dosage: 5AUC
     Route: 042
     Dates: start: 20200312, end: 20200312

REACTIONS (1)
  - Haematotoxicity [Recovered/Resolved]

NARRATIVE: CASE EVENT DATE: 20200917
